FAERS Safety Report 25150060 (Version 1)
Quarter: 2025Q2

REPORT INFORMATION
  Report Type: Spontaneous
  Country: GB (occurrence: None)
  Receive Date: 20250401
  Receipt Date: 20250401
  Transmission Date: 20250716
  Serious: Yes (Disabling)
  Sender: FDA-CTU
  Company Number: None

PATIENT
  Age: 31 Year
  Sex: Female
  Weight: 69 kg

DRUGS (2)
  1. ACETAZOLAMIDE [Suspect]
     Active Substance: ACETAZOLAMIDE
     Indication: Hypobarism
     Route: 048
     Dates: start: 20250322, end: 20250322
  2. Yasmin contraceptive pill [Concomitant]

REACTIONS (1)
  - Vision blurred [None]

NARRATIVE: CASE EVENT DATE: 20250323
